FAERS Safety Report 9333086 (Version 4)
Quarter: 2013Q3

REPORT INFORMATION
  Report Type: Report from Study
  Country: US (occurrence: US)
  Receive Date: 20130606
  Receipt Date: 20130910
  Transmission Date: 20140515
  Serious: Yes (Death, Life-Threatening, Hospitalization)
  Sender: FDA-Public Use
  Company Number: US-ACTELION-A-NJ2013-84028

PATIENT
  Age: 80 Year
  Sex: Male

DRUGS (2)
  1. TRACLEER [Suspect]
     Indication: PULMONARY HYPERTENSION
     Dosage: UNK
     Route: 048
     Dates: start: 20080228, end: 20130625
  2. SILDENAFIL [Concomitant]

REACTIONS (3)
  - Death [Fatal]
  - Aneurysm repair [Recovering/Resolving]
  - Aortic aneurysm repair [Recovering/Resolving]
